FAERS Safety Report 17870133 (Version 3)
Quarter: 2020Q3

REPORT INFORMATION
  Report Type: Spontaneous
  Country: US (occurrence: US)
  Receive Date: 20200608
  Receipt Date: 20200928
  Transmission Date: 20201103
  Serious: No
  Sender: FDA-Public Use
  Company Number: US-SA-2020SA146171

PATIENT

DRUGS (1)
  1. DUPIXENT [Suspect]
     Active Substance: DUPILUMAB
     Indication: DERMATITIS ATOPIC
     Dosage: 300 MG, QOW
     Route: 058
     Dates: start: 20200515

REACTIONS (3)
  - Abnormal dreams [Unknown]
  - Eye pain [Recovered/Resolved]
  - Poor quality sleep [Unknown]

NARRATIVE: CASE EVENT DATE: 2020
